FAERS Safety Report 5177141-7 (Version None)
Quarter: 2006Q4

REPORT INFORMATION
  Report Type: 
  Country: None (occurrence: None)
  Receive Date: 20061207
  Receipt Date: 20061128
  Transmission Date: 20070319
  Serious: Yes (Hospitalization)
  Sender: FDA-Public Use
  Company Number: 2006147771

PATIENT
  Age: 68 Year
  Sex: Female
  Weight: 79.6 kg

DRUGS (11)
  1. GENOTROPIN [Suspect]
     Indication: GROWTH HORMONE DEFICIENCY
     Dosage: 0.2 MG, FREQUENCY:  DAILY), SUBCUTANEOUS
     Route: 058
     Dates: start: 20010209, end: 20061123
  2. FLUDROCORTISONE ACETATE [Concomitant]
  3. HYDROCORTISONE [Concomitant]
  4. ATENOLOL [Concomitant]
  5. IMDUR [Concomitant]
  6. MESALAMINE [Concomitant]
  7. ASPIRIN [Concomitant]
  8. MORPHINE SULFATE [Concomitant]
  9. CYCLIZINE (CYCLIZINE) [Concomitant]
  10. LIPITOR [Concomitant]
  11. CITALOPRAM HYDROBROMIDE [Concomitant]

REACTIONS (1)
  - BREAST CANCER FEMALE [None]
